FAERS Safety Report 20887312 (Version 3)
Quarter: 2024Q1

REPORT INFORMATION
  Report Type: Spontaneous
  Country: CA (occurrence: CA)
  Receive Date: 20220528
  Receipt Date: 20240221
  Transmission Date: 20240410
  Serious: Yes (Other)
  Sender: FDA-Public Use
  Company Number: CA-CELLTRION INC.-2022CA007914

PATIENT

DRUGS (11)
  1. INFLECTRA [Suspect]
     Active Substance: INFLIXIMAB-DYYB
     Indication: Crohn^s disease
     Dosage: 300 MG Q 0, 2, 6 WEEKS, THEN EVERY 8 WEEKS
     Route: 042
     Dates: start: 20200428, end: 20210428
  2. INFLECTRA [Suspect]
     Active Substance: INFLIXIMAB-DYYB
     Dosage: 300 MG Q 0, 2, 6 WEEKS, THEN EVERY 8 WEEKS
     Route: 042
     Dates: start: 20210428, end: 20210428
  3. INFLECTRA [Suspect]
     Active Substance: INFLIXIMAB-DYYB
     Dosage: 300 MG, RE-INDUCTION AT WEEK 0,2 AND 6 THEN Q 8 WEEKS
     Route: 042
     Dates: start: 20220610, end: 20220610
  4. INFLECTRA [Suspect]
     Active Substance: INFLIXIMAB-DYYB
     Dosage: 300 MG, RE-INDUCTION AT WEEK 0,2 AND 6 THEN Q 8 WEEKS
     Route: 042
     Dates: start: 20220624, end: 20220624
  5. INFLECTRA [Suspect]
     Active Substance: INFLIXIMAB-DYYB
     Dosage: 300 MG,RE-INDUCTION AT WEEK 0,2 AND 6 THEN Q 8 WEEKS
     Route: 042
     Dates: start: 20220826
  6. INFLECTRA [Suspect]
     Active Substance: INFLIXIMAB-DYYB
     Dosage: 300 MG,RE-INDUCTION AT WEEK 0,2 AND 6 THEN Q 8 WEEKS
     Route: 042
     Dates: start: 20221021
  7. INFLECTRA [Suspect]
     Active Substance: INFLIXIMAB-DYYB
     Dosage: 300 MG, Q8WEEKS
     Route: 042
     Dates: start: 20230210
  8. INFLECTRA [Suspect]
     Active Substance: INFLIXIMAB-DYYB
     Dosage: 300 MG, Q8WEEKS
     Route: 042
     Dates: start: 20230609
  9. INFLECTRA [Suspect]
     Active Substance: INFLIXIMAB-DYYB
     Dosage: 300 MG, RE-INDUCTION AT WEEK 0,2 AND 6 THEN Q 8 WEEKS
     Route: 042
     Dates: start: 20231127
  10. INFLECTRA [Suspect]
     Active Substance: INFLIXIMAB-DYYB
     Dosage: 300 MG, RE-INDUCTION AT WEEK 0,2 AND 6 THEN Q 8 WEEKS (300 MG, 11 WEEKS)
     Route: 042
     Dates: start: 20240212
  11. PREDNISONE [Concomitant]
     Active Substance: PREDNISONE
     Dosage: UNK

REACTIONS (7)
  - Crohn^s disease [Unknown]
  - Maternal exposure during pregnancy [Unknown]
  - Weight decreased [Not Recovered/Not Resolved]
  - Condition aggravated [Recovered/Resolved]
  - Off label use [Unknown]
  - Off label use [Unknown]
  - Inappropriate schedule of product administration [Unknown]

NARRATIVE: CASE EVENT DATE: 20210428
